FAERS Safety Report 20558123 (Version 2)
Quarter: 2022Q2

REPORT INFORMATION
  Report Type: Spontaneous
  Country: DE (occurrence: DE)
  Receive Date: 20220307
  Receipt Date: 20220405
  Transmission Date: 20220720
  Serious: No
  Sender: FDA-Public Use
  Company Number: DE-UCBSA-2022010529

PATIENT
  Sex: Male

DRUGS (1)
  1. NEUPRO [Suspect]
     Active Substance: ROTIGOTINE
     Indication: Parkinson^s disease
     Dosage: 2MG

REACTIONS (5)
  - Restless legs syndrome [Recovering/Resolving]
  - Thinking abnormal [Recovering/Resolving]
  - Device malfunction [Unknown]
  - Product contamination physical [Unknown]
  - Therapeutic product ineffective [Unknown]
